FAERS Safety Report 8279349-0 (Version None)
Quarter: 2012Q2

REPORT INFORMATION
  Report Type: 
  Country: None (occurrence: None)
  Receive Date: 20120412
  Receipt Date: 20120105
  Transmission Date: 20120825
  Serious: No
  Sender: FDA-Public Use
  Company Number: US-ASTRAZENECA-2012SE01277

PATIENT
  Age: 48 Year
  Sex: Female

DRUGS (23)
  1. DIFLUCAN [Concomitant]
     Dosage: TAKE ONE TABLET DAILY AND REPEAT IN THREE DAYS
     Route: 048
     Dates: start: 20111117
  2. VITAMIN D [Concomitant]
     Route: 048
  3. ZANAFLEX [Concomitant]
     Route: 048
  4. CALCIUM CARBONATE [Concomitant]
     Dates: start: 20010206
  5. FISH OIL [Concomitant]
     Dosage: 1000MGS
     Route: 048
  6. LOVAZA [Concomitant]
  7. SAVELLA [Concomitant]
     Route: 048
     Dates: start: 20110512
  8. MULTI-VITAMIN [Concomitant]
     Dates: start: 20010206
  9. CYANOCOBALAMIN [Concomitant]
     Route: 048
  10. EVENING PRIMOSE OIL [Concomitant]
     Route: 048
  11. GLUCOSAMINE-CHONDROIT-VIT C [Concomitant]
     Route: 048
  12. ZESTRIL [Suspect]
     Route: 048
     Dates: start: 20110316
  13. PERCOCET [Concomitant]
     Dosage: 5-325 BID
     Route: 048
     Dates: start: 20111108
  14. COLACE [Concomitant]
     Route: 048
     Dates: start: 20110927
  15. NEXIUM [Suspect]
     Route: 048
     Dates: start: 20110316
  16. TOPAMAX [Concomitant]
     Route: 048
     Dates: start: 20110927
  17. SERTRALINE HYDROCHLORIDE [Concomitant]
  18. ELAVIL [Concomitant]
     Route: 048
     Dates: start: 20111117
  19. ZOLOFT [Concomitant]
     Route: 048
     Dates: start: 20111025
  20. CATAPRES [Concomitant]
     Route: 048
     Dates: start: 20111025
  21. VOLTAREN [Concomitant]
     Route: 048
     Dates: start: 20110927
  22. MYCOSTATIN [Concomitant]
     Dosage: 100000 UNITS /ML, FIVE ML FOUR TIMES DAILY
     Route: 048
     Dates: start: 20110607
  23. METAMUCIL FIBER SINGLES [Concomitant]
     Route: 048

REACTIONS (2)
  - ANXIETY [None]
  - WHEEZING [None]
